FAERS Safety Report 7730587-2 (Version None)
Quarter: 2011Q3

REPORT INFORMATION
  Report Type: 
  Country: None (occurrence: None)
  Receive Date: 20110906
  Receipt Date: 20110823
  Transmission Date: 20111222
  Serious: Yes (Hospitalization)
  Sender: FDA-Public Use
  Company Number: ES-JNJFOC-20110812824

PATIENT
  Age: 46 Year
  Sex: Female

DRUGS (4)
  1. TOPIRAMATE [Suspect]
     Indication: EPILEPSY
     Route: 048
  2. VALPROIC ACID [Interacting]
     Indication: EPILEPSY
     Route: 065
  3. TOPIRAMATE [Suspect]
     Route: 048
  4. PHENOBARBITAL TAB [Interacting]
     Indication: EPILEPSY
     Route: 065

REACTIONS (3)
  - DRUG INTERACTION [None]
  - HYPERAMMONAEMIC ENCEPHALOPATHY [None]
  - APHASIA [None]
